FAERS Safety Report 8837884 (Version 1)
Quarter: 2012Q4

REPORT INFORMATION
  Report Type: 
  Country: US (occurrence: US)
  Receive Date: 20121012
  Receipt Date: 20121012
  Transmission Date: 20130627
  Serious: Yes (Hospitalization)
  Sender: FDA-Public Use
  Company Number: US-BAYER-2012-104164

PATIENT
  Age: 29 Year
  Sex: Female

DRUGS (7)
  1. YAZ [Suspect]
     Indication: CONTRACEPTION
  2. YASMIN [Suspect]
     Indication: CONTRACEPTION
  3. CYMBALTA [Concomitant]
  4. KLONOPIN [Concomitant]
  5. SYNTHROID [Concomitant]
  6. ARIXTRA [Concomitant]
  7. CLONAZEPAM [Concomitant]

REACTIONS (3)
  - Thrombophlebitis superficial [None]
  - Pulmonary embolism [None]
  - Pulmonary infarction [None]
